FAERS Safety Report 4408631-X (Version None)
Quarter: 2004Q3

REPORT INFORMATION
  Report Type: 
  Country: None (occurrence: None)
  Receive Date: 20040723
  Receipt Date: 20040714
  Transmission Date: 20050211
  Serious: Yes (Other)
  Sender: FDA-Public Use
  Company Number: 200410468BNE

PATIENT

DRUGS (2)
  1. CIPROFLOXACIN [Suspect]
  2. AUGMENTIN [Concomitant]

REACTIONS (1)
  - APLASIA PURE RED CELL [None]
